FAERS Safety Report 4630409-2 (Version None)
Quarter: 2005Q2

REPORT INFORMATION
  Report Type: 
  Country: None (occurrence: None)
  Receive Date: 20050408
  Receipt Date: 20040917
  Transmission Date: 20051028
  Serious: Yes (Hospitalization, Disabling)
  Sender: FDA-Public Use
  Company Number: PHBS2004JP12557

PATIENT
  Age: 59 Year
  Sex: Female

DRUGS (4)
  1. GLEEVEC [Suspect]
     Indication: CHRONIC MYELOID LEUKAEMIA
     Dosage: 400 MG, QD
     Route: 048
     Dates: start: 20011217, end: 20040915
  2. ASPIRIN [Suspect]
     Dosage: 100 MG/D
     Route: 048
     Dates: start: 20040108, end: 20040915
  3. COENZA Q [Suspect]
     Route: 048
     Dates: start: 20040801, end: 20040916
  4. OTC ANTIDIARRHEALS [Concomitant]

REACTIONS (14)
  - ALANINE AMINOTRANSFERASE INCREASED [None]
  - BLOOD CREATININE INCREASED [None]
  - BLOOD URIC ACID INCREASED [None]
  - DIALYSIS [None]
  - DIARRHOEA [None]
  - DRUG INTERACTION [None]
  - DRUG LEVEL INCREASED [None]
  - DYSURIA [None]
  - MALAISE [None]
  - NEPHRITIS INTERSTITIAL [None]
  - OEDEMA PERIPHERAL [None]
  - RENAL FAILURE ACUTE [None]
  - RENAL FUNCTION TEST ABNORMAL [None]
  - SWELLING FACE [None]
